FAERS Safety Report 7885622-8 (Version None)
Quarter: 2011Q4

REPORT INFORMATION
  Report Type: 
  Country: None (occurrence: None)
  Receive Date: 20111102
  Receipt Date: 20110627
  Transmission Date: 20120403
  Serious: No
  Sender: FDA-Public Use
  Company Number: US-AMGEN-USASP2011032787

PATIENT
  Age: 22 Year
  Sex: Female

DRUGS (2)
  1. ENBREL [Suspect]
     Indication: PSORIASIS
  2. ENBREL [Suspect]
     Indication: RHEUMATOID ARTHRITIS
     Dosage: UNK UNK, QWK
     Dates: start: 19980101, end: 20110612

REACTIONS (5)
  - DRUG INEFFECTIVE [None]
  - PSORIASIS [None]
  - RHEUMATOID ARTHRITIS [None]
  - ARTHRALGIA [None]
  - INFECTION [None]
